FAERS Safety Report 9397559 (Version 2)
Quarter: 2013Q4

REPORT INFORMATION
  Report Type: Spontaneous
  Country: DE (occurrence: DE)
  Receive Date: 20130712
  Receipt Date: 20131112
  Transmission Date: 20140711
  Serious: Yes (Life-Threatening, Hospitalization)
  Sender: FDA-Public Use
  Company Number: DE-PFIZER INC-2013203679

PATIENT
  Age: 35 Year
  Sex: Male
  Weight: 85 kg

DRUGS (3)
  1. PANTOZOL [Suspect]
     Indication: ABDOMINAL DISCOMFORT
     Dosage: 40 MG, 1X/DAY
     Route: 048
     Dates: start: 2010, end: 201304
  2. METAMIZOLE SODIUM [Suspect]
     Indication: PAIN
     Dosage: 500 MG, 3X/DAY
     Route: 048
     Dates: start: 2010, end: 201212
  3. CLEXANE [Concomitant]
     Indication: THROMBOSIS PROPHYLAXIS
     Dosage: 1 DF, DAILY; STRENGTH:0.4 (UNIT NOT REPORTED)
     Route: 058

REACTIONS (3)
  - Sepsis [Recovered/Resolved]
  - Tracheobronchitis [Recovered/Resolved]
  - Agranulocytosis [Recovered/Resolved]
